FAERS Safety Report 4512685-X (Version None)
Quarter: 2004Q4

REPORT INFORMATION
  Report Type: 
  Country: None (occurrence: None)
  Receive Date: 20041012
  Receipt Date: 20040901
  Transmission Date: 20050328
  Serious: No
  Sender: FDA-Public Use
  Company Number: A03200403053

PATIENT
  Age: 75 Year
  Sex: Male

DRUGS (1)
  1. UROXATRAL [Suspect]
     Indication: BLADDER DISORDER
     Dosage: 10 MG QD, ORAL
     Route: 048
     Dates: start: 20040601

REACTIONS (1)
  - OEDEMA PERIPHERAL [None]
